FAERS Safety Report 11461978 (Version 1)
Quarter: 2015Q3

REPORT INFORMATION
  Report Type: Spontaneous
  Country: US (occurrence: US)
  Receive Date: 20150831
  Receipt Date: 20150831
  Transmission Date: 20151125
  Serious: Yes (Other)
  Sender: FDA-Public Use
  Company Number: US-ELI_LILLY_AND_COMPANY-US201002004632

PATIENT
  Sex: Male

DRUGS (2)
  1. TRAMADOL. [Interacting]
     Active Substance: TRAMADOL
     Dosage: UNK, UNKNOWN
  2. DULOXETINE HYDROCHLORIDE. [Suspect]
     Active Substance: DULOXETINE HYDROCHLORIDE
     Indication: PAIN
     Dosage: 60 MG, DAILY (1/D)

REACTIONS (4)
  - Intentional product misuse [Unknown]
  - Seizure [Recovered/Resolved]
  - Drug interaction [Recovered/Resolved]
  - Night sweats [Not Recovered/Not Resolved]
